FAERS Safety Report 9403222 (Version 2)
Quarter: 2013Q3

REPORT INFORMATION
  Report Type: Report from Study
  Country: US (occurrence: US)
  Receive Date: 20130716
  Receipt Date: 20130722
  Transmission Date: 20140515
  Serious: Yes (Hospitalization, Other)
  Sender: FDA-Public Use
  Company Number: US-ACTELION-A-US2013-85529

PATIENT
  Age: 70 Year
  Sex: Female

DRUGS (3)
  1. TRACLEER [Suspect]
     Indication: PULMONARY HYPERTENSION
     Dosage: UNK
     Route: 048
  2. TYVASO [Suspect]
  3. SILDENAFIL [Concomitant]

REACTIONS (3)
  - Vomiting [Recovering/Resolving]
  - Tremor [Recovering/Resolving]
  - Feeling abnormal [Recovering/Resolving]
